FAERS Safety Report 13169896 (Version 1)
Quarter: 2017Q1

REPORT INFORMATION
  Report Type: Report from Study
  Country: US (occurrence: US)
  Receive Date: 20170131
  Receipt Date: 20170131
  Transmission Date: 20170428
  Serious: Yes (Hospitalization)
  Sender: FDA-Public Use
  Company Number: US-EISAI MEDICAL RESEARCH-EC-2016-020600

PATIENT
  Age: 60 Year
  Sex: Female
  Weight: 98 kg

DRUGS (23)
  1. PANTOPRAZOLE SODIUM. [Concomitant]
     Active Substance: PANTOPRAZOLE SODIUM
  2. METHOTREXATE. [Concomitant]
     Active Substance: METHOTREXATE
  3. TIZANIDINE HCL [Concomitant]
     Active Substance: TIZANIDINE HYDROCHLORIDE
  4. FOLIC ACID. [Concomitant]
     Active Substance: FOLIC ACID
  5. DULOXETINE HCL [Concomitant]
     Active Substance: DULOXETINE HYDROCHLORIDE
  6. LENVIMA [Suspect]
     Active Substance: LENVATINIB
     Route: 048
     Dates: start: 20161020, end: 20161107
  7. MORPHINE SULFATE ER [Concomitant]
     Active Substance: MORPHINE SULFATE
  8. AMLODIPINE BESYLATE. [Concomitant]
     Active Substance: AMLODIPINE BESYLATE
  9. ADVIL [Concomitant]
     Active Substance: IBUPROFEN
  10. HYDROMORPHONE HCL [Concomitant]
     Active Substance: HYDROMORPHONE HYDROCHLORIDE
  11. ACYCLOVIR. [Concomitant]
     Active Substance: ACYCLOVIR
  12. LENVIMA [Suspect]
     Active Substance: LENVATINIB
     Indication: RENAL CANCER
     Route: 048
     Dates: start: 20160915, end: 20161017
  13. AFINITOR [Concomitant]
     Active Substance: EVEROLIMUS
  14. DEXAMETHAZONE [Concomitant]
     Active Substance: DEXAMETHASONE
  15. LENVIMA [Suspect]
     Active Substance: LENVATINIB
     Route: 048
     Dates: end: 201701
  16. GRANISETRON [Concomitant]
     Active Substance: GRANISETRON
  17. LORAZEPAM. [Concomitant]
     Active Substance: LORAZEPAM
  18. OMEPRAZOLE. [Concomitant]
     Active Substance: OMEPRAZOLE
  19. ESCITALOPRAM OXALATE. [Concomitant]
     Active Substance: ESCITALOPRAM OXALATE
  20. TRANSDERM SCOP [Concomitant]
     Active Substance: SCOPOLAMINE
  21. OXYCODONE [Concomitant]
     Active Substance: OXYCODONE
  22. CIPROFLOXACIN. [Concomitant]
     Active Substance: CIPROFLOXACIN
  23. SPIRIVA [Concomitant]
     Active Substance: TIOTROPIUM BROMIDE MONOHYDRATE

REACTIONS (10)
  - Kidney infection [Unknown]
  - Headache [Unknown]
  - Cystitis [Unknown]
  - Drug dose omission [Unknown]
  - Back pain [Unknown]
  - Nasopharyngitis [Unknown]
  - Nausea [Unknown]
  - Dizziness [Unknown]
  - Blood pressure increased [Unknown]
  - Diarrhoea [Unknown]

NARRATIVE: CASE EVENT DATE: 2016
